FAERS Safety Report 15003477 (Version 2)
Quarter: 2018Q3

REPORT INFORMATION
  Report Type: Spontaneous
  Country: JP (occurrence: JP)
  Receive Date: 20180613
  Receipt Date: 20180727
  Transmission Date: 20181010
  Serious: Yes (Life-Threatening)
  Sender: FDA-Public Use
  Company Number: JP-ROCHE-2137326

PATIENT
  Age: 57 Year
  Sex: Female
  Weight: 54 kg

DRUGS (6)
  1. PERJETA [Suspect]
     Active Substance: PERTUZUMAB
     Indication: BREAST CANCER
     Route: 041
     Dates: start: 20180529, end: 20180529
  2. TRAMAL [Concomitant]
     Active Substance: TRAMADOL
     Dosage: DOSAGE IS UNCERTAIN.
     Route: 048
     Dates: start: 20180213
  3. HERCEPTIN [Suspect]
     Active Substance: TRASTUZUMAB
     Indication: BREAST CANCER
     Route: 041
     Dates: start: 20180529, end: 20180529
  4. ACETAMINOPHEN. [Concomitant]
     Active Substance: ACETAMINOPHEN
     Dosage: DOSAGE IS UNCERTAIN.
     Route: 048
     Dates: start: 20180213
  5. ALDIOXA [Concomitant]
     Active Substance: ALDIOXA
     Dosage: DOSAGE IS UNCERTAIN.
     Route: 048
     Dates: start: 20180213
  6. LOBU [Concomitant]
     Active Substance: LOBUCAVIR
     Dosage: DOSAGE IS UNCERTAIN.
     Route: 048
     Dates: start: 20180213

REACTIONS (3)
  - Pyrexia [Recovered/Resolved]
  - Chills [Recovered/Resolved]
  - Acute pulmonary oedema [Recovered/Resolved]

NARRATIVE: CASE EVENT DATE: 20180529
